FAERS Safety Report 19508229 (Version 5)
Quarter: 2022Q3

REPORT INFORMATION
  Report Type: Report from Study
  Country: FR (occurrence: FR)
  Receive Date: 20210708
  Receipt Date: 20220818
  Transmission Date: 20221027
  Serious: Yes (Hospitalization, Other)
  Sender: FDA-Public Use
  Company Number: FR-TAKEDA-FR201829141

PATIENT
  Age: 61 Year
  Sex: Male
  Weight: 55 kg

DRUGS (32)
  1. TEDUGLUTIDE [Suspect]
     Active Substance: TEDUGLUTIDE
     Indication: Short-bowel syndrome
     Dosage: 2.8 MILLIGRAM, QD
     Route: 042
     Dates: start: 20160629
  2. TEDUGLUTIDE [Suspect]
     Active Substance: TEDUGLUTIDE
     Indication: Short-bowel syndrome
     Dosage: 2.8 MILLIGRAM, QD
     Route: 042
     Dates: start: 20160629
  3. TEDUGLUTIDE [Suspect]
     Active Substance: TEDUGLUTIDE
     Indication: Short-bowel syndrome
     Dosage: 2.8 MILLIGRAM, QD
     Route: 042
     Dates: start: 20160629
  4. TEDUGLUTIDE [Suspect]
     Active Substance: TEDUGLUTIDE
     Indication: Short-bowel syndrome
     Dosage: 2.8 MILLIGRAM, QD
     Route: 042
     Dates: start: 20160629
  5. CHOLECALCIFEROL [Concomitant]
     Active Substance: CHOLECALCIFEROL
     Indication: Supplementation therapy
     Dosage: 100000 INTERNATIONAL UNIT
     Route: 048
     Dates: start: 20171013
  6. RETINOL [Concomitant]
     Active Substance: RETINOL
     Indication: Supplementation therapy
     Dosage: 50000 INTERNATIONAL UNIT, 1/WEEK
     Route: 048
     Dates: start: 20171013
  7. .ALPHA.-TOCOPHEROL ACETATE, D- [Concomitant]
     Active Substance: .ALPHA.-TOCOPHEROL ACETATE, D-
     Indication: Supplementation therapy
     Dosage: 500 MILLIGRAM, QD
     Route: 048
     Dates: start: 20171013
  8. LANSOPRAZOLE [Concomitant]
     Active Substance: LANSOPRAZOLE
     Indication: Gastric disorder
     Dosage: 30 MILLIGRAM, BID
     Route: 048
     Dates: start: 20171013
  9. CREON [Concomitant]
     Active Substance: PANCRELIPASE AMYLASE\PANCRELIPASE LIPASE\PANCRELIPASE PROTEASE
     Indication: Crohn^s disease
     Dosage: 25000 UNK, TID
     Route: 048
     Dates: start: 20190423
  10. CALCIUM PHOSPHATE, DIBASIC, ANHYDROUS\MAGNESIUM GLYCEROPHOSPHATE\PHOSP [Concomitant]
     Active Substance: CALCIUM PHOSPHATE, DIBASIC, ANHYDROUS\MAGNESIUM GLYCEROPHOSPHATE\PHOSPHORIC ACID\SODIUM PHOSPHATE, D
     Indication: Supplementation therapy
     Dosage: 50 GTTS (DROPS), BID
     Route: 048
     Dates: start: 20190423
  11. CALCIUM PHOSPHATE, DIBASIC, ANHYDROUS\MAGNESIUM GLYCEROPHOSPHATE\PHOSP [Concomitant]
     Active Substance: CALCIUM PHOSPHATE, DIBASIC, ANHYDROUS\MAGNESIUM GLYCEROPHOSPHATE\PHOSPHORIC ACID\SODIUM PHOSPHATE, D
     Dosage: 50 GTTS (DROPS), BID
     Route: 048
     Dates: end: 20170914
  12. CALCIUM PHOSPHATE, DIBASIC, ANHYDROUS\MAGNESIUM GLYCEROPHOSPHATE\PHOSP [Concomitant]
     Active Substance: CALCIUM PHOSPHATE, DIBASIC, ANHYDROUS\MAGNESIUM GLYCEROPHOSPHATE\PHOSPHORIC ACID\SODIUM PHOSPHATE, D
     Dosage: 50 GTT DROPS, BID
     Route: 048
     Dates: start: 20170914
  13. CALCIUM PHOSPHATE, DIBASIC, ANHYDROUS\MAGNESIUM GLYCEROPHOSPHATE\PHOSP [Concomitant]
     Active Substance: CALCIUM PHOSPHATE, DIBASIC, ANHYDROUS\MAGNESIUM GLYCEROPHOSPHATE\PHOSPHORIC ACID\SODIUM PHOSPHATE, D
     Dosage: 25 GTT DROPS, TID
     Route: 048
     Dates: start: 20180921
  14. MAGNESIUM [Concomitant]
     Active Substance: MAGNESIUM
     Indication: Supplementation therapy
     Dosage: 100 MILLIGRAM, TID
     Route: 048
     Dates: start: 20180921
  15. SODIUM BICARBONATE [Concomitant]
     Active Substance: SODIUM BICARBONATE
     Indication: Supplementation therapy
     Dosage: 1.0 GRAM, TID
     Route: 048
     Dates: start: 20180921
  16. LOPERAMIDE [Concomitant]
     Active Substance: LOPERAMIDE
     Indication: Crohn^s disease
     Dosage: 6 MILLIGRAM, TID
     Route: 048
  17. ESOMEPRAZOLE [Concomitant]
     Active Substance: ESOMEPRAZOLE
     Indication: Short-bowel syndrome
     Dosage: 40 MILLIGRAM, QD
     Route: 048
     Dates: end: 20171013
  18. FERROUS SULFATE [Concomitant]
     Active Substance: FERROUS SULFATE
     Indication: Supplementation therapy
     Dosage: 80 MILLIGRAM, BID
     Route: 048
     Dates: end: 20190809
  19. POTASSIUM CHLORIDE [Concomitant]
     Active Substance: POTASSIUM CHLORIDE
     Indication: Supplementation therapy
     Dosage: 600 MILLIGRAM, BID
     Route: 048
  20. VITAMIN B12 [Concomitant]
     Active Substance: CYANOCOBALAMIN
     Indication: Supplementation therapy
     Dosage: 1000 MICROGRAM, 1/WEEK
     Route: 048
  21. CALCIUM CARBONATE\CHOLECALCIFEROL [Concomitant]
     Active Substance: CALCIUM CARBONATE\CHOLECALCIFEROL
     Indication: Supplementation therapy
     Dosage: 1000 MILLIGRAM, TID
     Route: 048
  22. ADIARIL [Concomitant]
     Indication: Short-bowel syndrome
     Dosage: 1 INTERNATIONAL UNIT, TID
     Route: 048
     Dates: start: 20161219
  23. Ketoderm [Concomitant]
     Indication: Acne
     Dosage: 1 INTERNATIONAL UNIT
     Route: 062
  24. LOVENOX [Concomitant]
     Active Substance: ENOXAPARIN SODIUM
     Indication: Prophylaxis
     Dosage: 40000 INTERNATIONAL UNIT, QD
     Route: 058
     Dates: start: 20160301, end: 201606
  25. LOVENOX [Concomitant]
     Active Substance: ENOXAPARIN SODIUM
     Dosage: 0.4 MILLILITER
     Route: 042
     Dates: start: 20170108, end: 20170123
  26. CEFAZOLIN SODIUM [Concomitant]
     Active Substance: CEFAZOLIN SODIUM
     Indication: Vascular device infection
     Dosage: 1.7 GRAM, QD
     Route: 042
     Dates: start: 20160619, end: 20160620
  27. VANCOMYCIN [Concomitant]
     Active Substance: VANCOMYCIN
     Indication: Vascular device infection
  28. PHLOROGLUCINOL [Concomitant]
     Active Substance: PHLOROGLUCINOL
     Indication: Abdominal pain
     Dosage: 80 MILLIGRAM
     Dates: start: 20160713, end: 20160715
  29. LEVOFLOXACIN [Concomitant]
     Active Substance: LEVOFLOXACIN
     Indication: Device related thrombosis
     Dosage: 0.4 MILLILITER, QD
     Route: 042
     Dates: start: 20170208, end: 20170308
  30. VITAMIN K [Concomitant]
     Active Substance: PHYTONADIONE
     Indication: Supplementation therapy
     Dosage: 10 MILLIGRAM, 1/WEEK
     Route: 048
     Dates: start: 201606
  31. MAGNESIUM CITRATE [Concomitant]
     Active Substance: MAGNESIUM CITRATE
     Indication: Supplementation therapy
     Dosage: 250 MILLIGRAM, TID
     Route: 048
     Dates: start: 20170630
  32. SODIUM BICARBONATE [Concomitant]
     Active Substance: SODIUM BICARBONATE
     Indication: Supplementation therapy
     Dosage: 1 GRAM, TID
     Route: 048
     Dates: start: 20180921

REACTIONS (2)
  - Gastric polyps [Recovered/Resolved]
  - Small intestine polyp [Recovered/Resolved]

NARRATIVE: CASE EVENT DATE: 20180628
